FAERS Safety Report 9230773 (Version 2)
Quarter: 2014Q1

REPORT INFORMATION
  Report Type: Spontaneous
  Country: JP (occurrence: JP)
  Receive Date: 20130415
  Receipt Date: 20140311
  Transmission Date: 20141002
  Serious: Yes (Other)
  Sender: FDA-Public Use
  Company Number: JP-SANOFI-AVENTIS-2013SA037421

PATIENT
  Age: 44 Year
  Sex: Male
  Weight: 78 kg

DRUGS (27)
  1. ELPLAT [Suspect]
     Indication: RECTAL CANCER
     Route: 041
     Dates: start: 20100715, end: 20100715
  2. ELPLAT [Suspect]
     Indication: RECTAL CANCER
     Route: 041
     Dates: start: 20100805, end: 20100805
  3. ELPLAT [Suspect]
     Indication: RECTAL CANCER
     Route: 041
     Dates: start: 20100826, end: 20100826
  4. ELPLAT [Suspect]
     Indication: RECTAL CANCER
     Route: 041
     Dates: start: 20100916, end: 20100916
  5. ELPLAT [Suspect]
     Indication: RECTAL CANCER
     Route: 041
     Dates: start: 20101007, end: 20101007
  6. ELPLAT [Suspect]
     Indication: RECTAL CANCER
     Route: 041
     Dates: start: 20101028, end: 20101028
  7. ELPLAT [Suspect]
     Indication: RECTAL CANCER
     Route: 041
     Dates: start: 20101118, end: 20101118
  8. ELPLAT [Suspect]
     Indication: RECTAL CANCER
     Route: 041
     Dates: start: 20101209, end: 20101209
  9. ELPLAT [Suspect]
     Indication: RECTAL CANCER
     Route: 041
     Dates: start: 20110113, end: 20110113
  10. ELPLAT [Suspect]
     Indication: RECTAL CANCER
     Route: 041
     Dates: start: 20110224, end: 20110224
  11. XELODA [Suspect]
     Indication: RECTAL CANCER
     Route: 048
     Dates: start: 20100715, end: 20100729
  12. XELODA [Suspect]
     Indication: RECTAL CANCER
     Route: 048
     Dates: start: 20100805, end: 20100819
  13. XELODA [Suspect]
     Indication: RECTAL CANCER
     Route: 048
     Dates: start: 20100826, end: 20100909
  14. XELODA [Suspect]
     Indication: RECTAL CANCER
     Route: 048
     Dates: start: 20100916, end: 20100930
  15. XELODA [Suspect]
     Indication: RECTAL CANCER
     Route: 048
     Dates: start: 20101007, end: 20101021
  16. XELODA [Suspect]
     Indication: RECTAL CANCER
     Route: 048
     Dates: start: 20101028, end: 20101111
  17. XELODA [Suspect]
     Indication: RECTAL CANCER
     Route: 048
     Dates: start: 20101118, end: 20101202
  18. XELODA [Suspect]
     Indication: RECTAL CANCER
     Route: 048
     Dates: start: 20101209, end: 20101223
  19. XELODA [Suspect]
     Indication: RECTAL CANCER
     Route: 048
     Dates: start: 20110113, end: 20110127
  20. XELODA [Suspect]
     Indication: RECTAL CANCER
     Route: 048
     Dates: start: 20110203, end: 20110217
  21. XELODA [Suspect]
     Indication: RECTAL CANCER
     Route: 048
     Dates: start: 20110224, end: 20110310
  22. AVASTIN [Concomitant]
     Dosage: 570 MG/BODY
     Dates: start: 20100916, end: 20110224
  23. GRANISETRON [Concomitant]
     Dates: start: 20100715, end: 20110224
  24. DECADRON [Concomitant]
     Dates: start: 20100715, end: 20110224
  25. GLACTIV [Concomitant]
     Dates: start: 20120505, end: 20130228
  26. GLUCOBAY [Concomitant]
     Dates: start: 20120525, end: 20130228
  27. GLIMICRON [Concomitant]
     Dates: start: 20121108, end: 20130228

REACTIONS (1)
  - Immune thrombocytopenic purpura [Recovered/Resolved]
